FAERS Safety Report 17072018 (Version 2)
Quarter: 2021Q4

REPORT INFORMATION
  Report Type: Spontaneous
  Country: IN (occurrence: IN)
  Receive Date: 20191125
  Receipt Date: 20211005
  Transmission Date: 20220303
  Serious: Yes (Other)
  Sender: FDA-Public Use
  Company Number: IN-BRISTOL-MYERS SQUIBB COMPANY-BMS-2019-110658

PATIENT
  Age: 58 Year
  Sex: Male

DRUGS (1)
  1. TRIAMCINOLONE ACETONIDE [Suspect]
     Active Substance: TRIAMCINOLONE ACETONIDE
     Indication: Diabetic retinal oedema
     Dosage: POSTERIOR SUB-TENON?S (PST) INJECTION
     Route: 031

REACTIONS (3)
  - Open globe injury [Recovering/Resolving]
  - Intentional product use issue [Unknown]
  - Intentional product use issue [Unknown]
